FAERS Safety Report 15907794 (Version 1)
Quarter: 2019Q1

REPORT INFORMATION
  Report Type: Spontaneous
  Country: US (occurrence: US)
  Receive Date: 20190204
  Receipt Date: 20190204
  Transmission Date: 20190417
  Serious: Yes (Hospitalization)
  Sender: FDA-Public Use
  Company Number: US-ASTRAZENECA-2019SE19316

PATIENT
  Sex: Male
  Weight: 104.3 kg

DRUGS (12)
  1. LOSARTAN AND HYDROCHLOROTHIAZIDE [Concomitant]
     Active Substance: HYDROCHLOROTHIAZIDE\LOSARTAN POTASSIUM
     Indication: BLOOD PRESSURE ABNORMAL
     Dosage: DAILY
     Route: 048
     Dates: start: 2001
  2. OMEPRAZOLE. [Suspect]
     Active Substance: OMEPRAZOLE
     Indication: GASTROOESOPHAGEAL REFLUX DISEASE
     Dosage: S
     Route: 048
  3. SLO MAG [Concomitant]
     Indication: CARDIAC DISORDER
     Route: 048
  4. FISH OIL [Concomitant]
     Active Substance: FISH OIL
     Indication: SUPPLEMENTATION THERAPY
     Dosage: DAIL
     Route: 048
  5. VITAMIN E [Concomitant]
     Active Substance: .ALPHA.-TOCOPHEROL
     Indication: SUPPLEMENTATION THERAPY
     Dosage: DAILY
     Route: 048
  6. DALIRESP [Suspect]
     Active Substance: ROFLUMILAST
     Indication: CHRONIC OBSTRUCTIVE PULMONARY DISEASE
     Route: 048
     Dates: start: 201812
  7. COREG [Concomitant]
     Active Substance: CARVEDILOL
     Indication: BLOOD PRESSURE ABNORMAL
     Route: 048
     Dates: start: 2001
  8. PROSCAR [Concomitant]
     Active Substance: FINASTERIDE
     Indication: PROSTATE CANCER
     Route: 048
     Dates: start: 2006
  9. TRIGLIDE [Concomitant]
     Active Substance: FENOFIBRATE
     Indication: BLOOD CHOLESTEROL ABNORMAL
     Route: 048
     Dates: start: 2001
  10. LEVOTHYROXINE. [Concomitant]
     Active Substance: LEVOTHYROXINE
     Indication: THYROID HORMONE REPLACEMENT THERAPY
     Route: 048
     Dates: start: 2009
  11. VITAMIN D [Concomitant]
     Active Substance: CHOLECALCIFEROL
     Indication: SUPPLEMENTATION THERAPY
     Route: 048
  12. VITAMIN C [Concomitant]
     Active Substance: ASCORBIC ACID
     Indication: SUPPLEMENTATION THERAPY
     Route: 048

REACTIONS (6)
  - Pseudomonas infection [Unknown]
  - Chronic obstructive pulmonary disease [Unknown]
  - Heart rate increased [Unknown]
  - Functional gastrointestinal disorder [Not Recovered/Not Resolved]
  - Thyroid disorder [Recovered/Resolved]
  - Mycobacterium avium complex infection [Unknown]
